FAERS Safety Report 4896752-7 (Version None)
Quarter: 2005Q4

REPORT INFORMATION
  Report Type: 
  Country: None (occurrence: None)
  Receive Date: 20051223
  Receipt Date: 20051027
  Transmission Date: 20060501
  Serious: Yes (Other)
  Sender: FDA-Public Use
  Company Number: PHEH2005US11913

PATIENT
  Age: 27 Year
  Sex: Male
  Weight: 111.1 kg

DRUGS (1)
  1. CLOZARIL [Suspect]
     Dosage: 500 MG, QD, ORAL
     Route: 048
     Dates: start: 20000101

REACTIONS (5)
  - FEELINGS OF WORTHLESSNESS [None]
  - HYPERSOMNIA [None]
  - RESTLESSNESS [None]
  - SUICIDE ATTEMPT [None]
  - VOMITING [None]
